FAERS Safety Report 7999171-X (Version None)
Quarter: 2011Q4

REPORT INFORMATION
  Report Type: 
  Country: None (occurrence: None)
  Receive Date: 20111221
  Receipt Date: 20111216
  Transmission Date: 20120403
  Serious: Yes (Hospitalization, Other)
  Sender: FDA-Public Use
  Company Number: US-PFIZER INC-2009263496

PATIENT
  Sex: Female

DRUGS (7)
  1. NORTRIPTYLINE [Concomitant]
     Indication: DEPRESSION
     Dosage: UNK
     Dates: start: 19990101
  2. NEURONTIN [Concomitant]
     Indication: CONVULSION
     Dosage: UNK
     Dates: start: 19990101
  3. CHANTIX [Suspect]
     Indication: SMOKING CESSATION THERAPY
     Dosage: 0.5MG/1MG
     Route: 048
     Dates: start: 20061101, end: 20070801
  4. LAMICTAL [Concomitant]
     Indication: BIPOLAR DISORDER
     Dosage: UNK
     Dates: start: 19990101
  5. HYDROCODONE [Concomitant]
     Indication: PAIN
     Dosage: UNK
     Dates: start: 20000101, end: 20100101
  6. NAPROXEN [Concomitant]
     Indication: PAIN
     Dosage: UNK
     Dates: start: 20000101, end: 20100101
  7. SPIRIVA [Concomitant]
     Indication: CHRONIC OBSTRUCTIVE PULMONARY DISEASE
     Dosage: UNK
     Dates: start: 20040101

REACTIONS (7)
  - SUICIDE ATTEMPT [None]
  - ANXIETY [None]
  - PANIC ATTACK [None]
  - INTENTIONAL OVERDOSE [None]
  - CONVULSION [None]
  - DEPRESSION [None]
  - ABNORMAL BEHAVIOUR [None]
